FAERS Safety Report 7787340-3 (Version None)
Quarter: 2011Q3

REPORT INFORMATION
  Report Type: 
  Country: None (occurrence: None)
  Receive Date: 20110929
  Receipt Date: 20110923
  Transmission Date: 20111222
  Serious: Yes (Death, Hospitalization)
  Sender: FDA-Public Use
  Company Number: GB-ELI_LILLY_AND_COMPANY-GB201109006484

PATIENT
  Age: 57 Year
  Sex: Female
  Weight: 57 kg

DRUGS (13)
  1. ISORBIDE [Concomitant]
     Dosage: UNK, UNKNOWN
  2. URSODIOL [Concomitant]
     Dosage: UNK, UNKNOWN
  3. DIAZEPAM [Concomitant]
     Dosage: UNK, UNKNOWN
  4. DOTHIEPIN HYDROCHLORIDE [Concomitant]
     Dosage: UNK, UNKNOWN
  5. FUROSEMIDE [Concomitant]
     Dosage: UNK, UNKNOWN
  6. SIMVASTATIN [Concomitant]
     Dosage: UNK, UNKNOWN
  7. WARFARIN SODIUM [Concomitant]
     Dosage: UNK, UNKNOWN
  8. GEMCITABINE HYDROCHLORIDE [Suspect]
     Indication: PANCREATIC CARCINOMA
     Dosage: 1596 MG, UNKNOWN
     Route: 042
     Dates: start: 20110729, end: 20110729
  9. BISOPROLOL [Concomitant]
     Dosage: UNK, UNKNOWN
  10. IRBESARTAN [Concomitant]
     Dosage: UNK, UNKNOWN
  11. ZOPICLONE [Concomitant]
     Dosage: UNK, UNKNOWN
  12. OXYCONTIN [Concomitant]
     Dosage: UNK, UNKNOWN
  13. PANTOPRAZOLE [Concomitant]
     Dosage: UNK, UNKNOWN

REACTIONS (2)
  - NEUTROPENIC SEPSIS [None]
  - TOXIC EPIDERMAL NECROLYSIS [None]
